FAERS Safety Report 26000790 (Version 1)
Quarter: 2025Q4

REPORT INFORMATION
  Report Type: Report from Study
  Country: EU (occurrence: EU)
  Receive Date: 20251105
  Receipt Date: 20251105
  Transmission Date: 20260117
  Serious: Yes (Hospitalization, Other)
  Sender: EMD SERONO INC
  Company Number: EU-Merck Healthcare KGaA-2025055114

PATIENT
  Age: 42 Year
  Sex: Female

DRUGS (4)
  1. CLADRIBINE [Suspect]
     Active Substance: CLADRIBINE
     Indication: Product used for unknown indication
     Dosage: YEAR ONE WEEK ONE THERAPY: WEIGHT AT THE TIME OF DOSE WAS 47 KG
  2. CLADRIBINE [Suspect]
     Active Substance: CLADRIBINE
     Dosage: YEAR ONE WEEK TWO THERAPY: WEIGHT AT THE TIME OF DOSE WAS 47 KG
  3. CLADRIBINE [Suspect]
     Active Substance: CLADRIBINE
     Dosage: YEAR TWO-WEEK ONE THERAPY: WEIGHT AT THE TIME OF DOSE WAS 47 KG
  4. CLADRIBINE [Suspect]
     Active Substance: CLADRIBINE
     Dosage: YEAR TWO-WEEK TWO THERAPY: WEIGHT AT THE TIME OF DOSE WAS 47 KG
     Dates: start: 20211212, end: 20211216

REACTIONS (2)
  - Septic shock [Recovered/Resolved with Sequelae]
  - Urosepsis [Recovered/Resolved with Sequelae]

NARRATIVE: CASE EVENT DATE: 20240621
